FAERS Safety Report 4770575-1 (Version None)
Quarter: 2005Q3

REPORT INFORMATION
  Report Type: 
  Country: None (occurrence: None)
  Receive Date: 20050915
  Receipt Date: 20050909
  Transmission Date: 20060218
  Serious: Yes (Other)
  Sender: FDA-Public Use
  Company Number: CA-MERCK-0509USA01111

PATIENT
  Age: 57 Year
  Sex: Male

DRUGS (5)
  1. SINGULAIR [Suspect]
     Route: 048
  2. ACCOLATE [Suspect]
     Route: 048
  3. FLOVENT [Concomitant]
     Route: 055
  4. FORADIL [Concomitant]
     Route: 055
  5. VENTOLIN [Concomitant]
     Route: 055

REACTIONS (5)
  - EOSINOPHILIA [None]
  - GRANULOMA [None]
  - LEUKOCYTOCLASTIC VASCULITIS [None]
  - MONONEURITIS [None]
  - PETECHIAE [None]
